FAERS Safety Report 9788066 (Version 1)
Quarter: 2013Q4

REPORT INFORMATION
  Report Type: Spontaneous
  Country: BE (occurrence: BE)
  Receive Date: 20131230
  Receipt Date: 20131230
  Transmission Date: 20140711
  Serious: Yes (Hospitalization, Other)
  Sender: FDA-Public Use
  Company Number: BE-JNJFOC-20131214988

PATIENT
  Age: 76 Year
  Sex: Male

DRUGS (4)
  1. XARELTO [Suspect]
     Indication: CEREBROVASCULAR ACCIDENT PROPHYLAXIS
     Route: 048
     Dates: start: 20130528
  2. XARELTO [Suspect]
     Indication: ATRIAL FIBRILLATION
     Route: 048
     Dates: start: 20130528
  3. AMLOR [Concomitant]
     Route: 065
  4. UNI DIAMICRON [Concomitant]
     Route: 065

REACTIONS (4)
  - Aortic rupture [Unknown]
  - Haemorrhage [Unknown]
  - Renal impairment [Unknown]
  - Loss of consciousness [Unknown]
